FAERS Safety Report 11527307 (Version 4)
Quarter: 2025Q3

REPORT INFORMATION
  Report Type: Spontaneous
  Country: EU (occurrence: EU)
  Receive Date: 20150919
  Receipt Date: 20250728
  Transmission Date: 20251020
  Serious: Yes (Death, Life-Threatening, Hospitalization, Other)
  Sender: NOVARTIS
  Company Number: PHHY2015IT112860

PATIENT
  Age: 52 Year
  Sex: Male

DRUGS (15)
  1. CYCLOSPORINE [Suspect]
     Active Substance: CYCLOSPORINE
     Indication: Immunosuppression
     Route: 048
  2. CYCLOSPORINE [Suspect]
     Active Substance: CYCLOSPORINE
     Indication: Heart transplant
  3. CYCLOSPORINE [Suspect]
     Active Substance: CYCLOSPORINE
     Indication: Immunosuppressant drug therapy
  4. PREDNISONE [Suspect]
     Active Substance: PREDNISONE
     Indication: Immunosuppression
     Dosage: 10 MG, QD (5-10 MG/DAY)
     Route: 048
  5. PREDNISONE [Suspect]
     Active Substance: PREDNISONE
     Indication: Heart transplant
  6. PREDNISONE [Suspect]
     Active Substance: PREDNISONE
     Indication: Immunosuppressant drug therapy
  7. AZATHIOPRINE [Suspect]
     Active Substance: AZATHIOPRINE
     Indication: Immunosuppression
     Dosage: 25 MG, QD
     Route: 048
  8. AZATHIOPRINE [Suspect]
     Active Substance: AZATHIOPRINE
     Indication: Heart transplant
  9. AZATHIOPRINE [Suspect]
     Active Substance: AZATHIOPRINE
     Indication: Immunosuppressant drug therapy
  10. METHYLPREDNISOLONE [Suspect]
     Active Substance: METHYLPREDNISOLONE
     Indication: Immune tolerance induction
     Dosage: 1 G, QD
     Route: 065
  11. METHYLPREDNISOLONE [Suspect]
     Active Substance: METHYLPREDNISOLONE
     Indication: Immunosuppressant drug therapy
  12. THYMOGLOBULIN [Suspect]
     Active Substance: LAPINE T-LYMPHOCYTE IMMUNE GLOBULIN
     Indication: Immune tolerance induction
     Dosage: 1.5 MG/KG, QD
     Route: 065
  13. THYMOGLOBULIN [Suspect]
     Active Substance: LAPINE T-LYMPHOCYTE IMMUNE GLOBULIN
     Indication: Immunosuppressant drug therapy
     Route: 042
  14. COLCHICINE [Concomitant]
     Active Substance: COLCHICINE
     Indication: Cardiac tamponade
     Route: 065
  15. IBUPROFEN [Concomitant]
     Active Substance: IBUPROFEN
     Indication: Cardiac tamponade
     Route: 065

REACTIONS (17)
  - Multiple organ dysfunction syndrome [Fatal]
  - Post transplant lymphoproliferative disorder [Fatal]
  - Pleural effusion [Fatal]
  - Pericardial effusion [Fatal]
  - Acute myocardial infarction [Fatal]
  - Cardiac arrest [Fatal]
  - Coronary artery thrombosis [Fatal]
  - Vasculitis [Fatal]
  - Pericarditis [Fatal]
  - Hypotension [Fatal]
  - Anuria [Fatal]
  - Metabolic acidosis [Fatal]
  - Vasculitis necrotising [Fatal]
  - Ventricular dysfunction [Fatal]
  - Dyspnoea [Fatal]
  - Oedema peripheral [Fatal]
  - Heart transplant rejection [Unknown]
